FAERS Safety Report 6357027-2 (Version None)
Quarter: 2009Q3

REPORT INFORMATION
  Report Type: 
  Country: None (occurrence: None)
  Receive Date: 20090915
  Receipt Date: 20090202
  Transmission Date: 20100115
  Serious: No
  Sender: FDA-Public Use
  Company Number: US-ABBOTT-09P-163-0501375-00

PATIENT
  Age: 37 Year
  Sex: Female
  Weight: 54.48 kg

DRUGS (1)
  1. DEPAKOTE [Suspect]
     Indication: EPILEPSY
     Dosage: 3 TIMES DAILY, 1 IN 8 HRS
     Route: 048
     Dates: start: 19880101

REACTIONS (8)
  - ABNORMAL SENSATION IN EYE [None]
  - ANTICONVULSANT DRUG LEVEL INCREASED [None]
  - COGNITIVE DISORDER [None]
  - DRY EYE [None]
  - DRY MOUTH [None]
  - GAIT DISTURBANCE [None]
  - PERSONALITY CHANGE [None]
  - SPEECH DISORDER [None]
